FAERS Safety Report 25300012 (Version 1)
Quarter: 2025Q2

REPORT INFORMATION
  Report Type: Report from Study
  Country: US (occurrence: US)
  Receive Date: 20250512
  Receipt Date: 20250512
  Transmission Date: 20250717
  Serious: Yes (Other)
  Sender: ABBVIE
  Company Number: US-ABBVIE-6275956

PATIENT
  Sex: Female

DRUGS (1)
  1. RINVOQ [Suspect]
     Active Substance: UPADACITINIB
     Indication: Psoriatic arthropathy
     Dosage: STRENGTH 15MG
     Route: 048
     Dates: start: 20240923

REACTIONS (4)
  - Cataract [Recovering/Resolving]
  - Blood glucose increased [Unknown]
  - Insulin resistance [Unknown]
  - Weight increased [Recovering/Resolving]
